FAERS Safety Report 7580822-9 (Version None)
Quarter: 2011Q2

REPORT INFORMATION
  Report Type: 
  Country: None (occurrence: None)
  Receive Date: 20110629
  Receipt Date: 20110627
  Transmission Date: 20111010
  Serious: Yes (Death, Life-Threatening, Hospitalization)
  Sender: FDA-Public Use
  Company Number: US-B.I. PHARMACEUTICALS,INC./RIDGEFIELD-2011-BP-02243BP

PATIENT
  Sex: Female
  Weight: 70.76 kg

DRUGS (17)
  1. BUMETANIDE [Concomitant]
     Dosage: 1 MG
  2. LORAZEPAM [Concomitant]
  3. VITAMIN D [Concomitant]
     Dosage: 2000 U
  4. SPIRIVA [Concomitant]
     Dosage: 18 MCG
  5. DILTIAZEM HCL [Concomitant]
     Dosage: 180 MG
  6. ASPIR-81 [Concomitant]
     Dosage: 81 MG
  7. COREG CR [Concomitant]
     Dosage: 10 MG
  8. NITROGLYCERIN [Concomitant]
  9. ALBUTEROL [Concomitant]
  10. LISINOPRIL [Concomitant]
     Dosage: 10 MG
  11. PRADAXA [Suspect]
     Indication: ATRIAL FIBRILLATION
     Dosage: 300 MG
     Dates: start: 20110113, end: 20110208
  12. HYDROCODONE BITARTRATE AND ACETAMINOPHEN [Concomitant]
  13. AMBIEN [Concomitant]
     Dosage: 5 MG
  14. VITAMIN B-12 [Concomitant]
     Indication: VITAMIN B12 DEFICIENCY
  15. PRILOSEC [Concomitant]
     Dosage: 40 MG
  16. KLOR-CON M10 [Concomitant]
     Dosage: 20 MEQ
  17. CYMBALTA [Concomitant]
     Dosage: 60 MG

REACTIONS (2)
  - CARDIAC DISORDER [None]
  - INTESTINAL ISCHAEMIA [None]
